FAERS Safety Report 7978170-8 (Version None)
Quarter: 2011Q4

REPORT INFORMATION
  Report Type: 
  Country: None (occurrence: None)
  Receive Date: 20111214
  Receipt Date: 20111206
  Transmission Date: 20120403
  Serious: Yes (Death, Other)
  Sender: FDA-Public Use
  Company Number: US-ELI_LILLY_AND_COMPANY-US201111002304

PATIENT
  Sex: Female

DRUGS (3)
  1. FORTEO [Suspect]
     Indication: OSTEOPOROSIS
     Dosage: 20 UG, QD
     Dates: start: 20111007
  2. CALCIUM CARBONATE [Concomitant]
  3. CALCIUM [Concomitant]

REACTIONS (6)
  - NAUSEA [None]
  - METASTATIC SQUAMOUS CELL CARCINOMA [None]
  - ABDOMINAL PAIN UPPER [None]
  - DEATH [None]
  - MUSCULAR WEAKNESS [None]
  - PAIN [None]
